FAERS Safety Report 7971200-9 (Version None)
Quarter: 2011Q4

REPORT INFORMATION
  Report Type: 
  Country: None (occurrence: None)
  Receive Date: 20111212
  Receipt Date: 20111206
  Transmission Date: 20120403
  Serious: Yes (Life-Threatening, Disabling, Other)
  Sender: FDA-Public Use
  Company Number: US-ASTRAZENECA-2011SE74227

PATIENT

DRUGS (3)
  1. SEROQUEL [Suspect]
     Indication: BIPOLAR DISORDER
     Route: 048
  2. LAMICTAL [Concomitant]
     Indication: BIPOLAR DISORDER
  3. CYMBALTA [Concomitant]
     Indication: BIPOLAR DISORDER

REACTIONS (6)
  - MOOD SWINGS [None]
  - SUICIDE ATTEMPT [None]
  - ACTIVITIES OF DAILY LIVING IMPAIRED [None]
  - FIBROMYALGIA [None]
  - DRUG DOSE OMISSION [None]
  - DEPRESSION [None]
